FAERS Safety Report 7610478-8 (Version None)
Quarter: 2011Q3

REPORT INFORMATION
  Report Type: 
  Country: None (occurrence: None)
  Receive Date: 20110715
  Receipt Date: 20080925
  Transmission Date: 20111222
  Serious: Yes (Death, Hospitalization, Other)
  Sender: FDA-Public Use
  Company Number: US-BAYER-200838534NA

PATIENT
  Age: 83 Year
  Sex: Female
  Weight: 55 kg

DRUGS (18)
  1. TRASYLOL [Suspect]
     Indication: AORTIC VALVE REPLACEMENT
     Dosage: 200 ML, LOADING DOSE
     Route: 042
     Dates: start: 20060309, end: 20060309
  2. LIPITOR [Concomitant]
     Dosage: 10 MG, QD
     Route: 048
  3. MIACALCIN [Concomitant]
  4. HEPARIN [Concomitant]
     Dosage: 3000 U, UNK
  5. VANCOMYCIN [Concomitant]
     Dosage: 2 G, UNK
  6. TRASYLOL [Suspect]
     Indication: CORONARY ARTERY BYPASS
     Dosage: 50 CC/HR INFUSION
     Route: 042
     Dates: start: 20060309, end: 20060309
  7. LEVOPHED [Concomitant]
     Dosage: 4 MG, UNK
  8. CAPTOPRIL [Concomitant]
     Dosage: 25 MG, BID
     Route: 048
  9. VERSED [Concomitant]
     Dosage: 5 MG, UNK
  10. FENTANYL [Concomitant]
     Dosage: 100 ML, UNK
  11. DEXAMETHASONE [Concomitant]
     Dosage: 20 MG, UNK
  12. NIFEDIPINE [Concomitant]
     Dosage: 60 MG, QD
     Route: 048
  13. ACETYLSALICYLIC ACID SRT [Concomitant]
  14. PROTAMINE SULFATE [Concomitant]
     Dosage: 300 MG, UNK
  15. TRASYLOL [Suspect]
     Indication: ANEURYSM REPAIR
  16. RANITIDINE [Concomitant]
     Dosage: 150 MG, BID
     Route: 048
  17. ROCURONIUM BROMIDE [Concomitant]
     Dosage: 550
  18. CONTRAST MEDIA [Concomitant]
     Indication: CATHETERISATION CARDIAC
     Dosage: UNK
     Dates: start: 20060223

REACTIONS (6)
  - PAIN [None]
  - RENAL FAILURE [None]
  - ANHEDONIA [None]
  - INJURY [None]
  - DEATH [None]
  - UNEVALUABLE EVENT [None]
